FAERS Safety Report 21123947 (Version 2)
Quarter: 2022Q3

REPORT INFORMATION
  Report Type: Report from Study
  Country: US (occurrence: US)
  Receive Date: 20220725
  Receipt Date: 20220729
  Transmission Date: 20221027
  Serious: Yes (Other)
  Sender: FDA-Public Use
  Company Number: US-ABBVIE-22K-163-4476628-00

PATIENT
  Age: 48 Year
  Sex: Male
  Weight: 97.610 kg

DRUGS (10)
  1. HUMIRA [Suspect]
     Active Substance: ADALIMUMAB
     Indication: Colitis ulcerative
     Dosage: CITRATE FREE
     Route: 058
     Dates: start: 20170601
  2. PFIZER-BIONTECH COVID-19 VACCINE [Concomitant]
     Active Substance: TOZINAMERAN
     Indication: COVID-19 immunisation
     Dosage: PFIZER
     Route: 030
     Dates: start: 20210308, end: 20210308
  3. PFIZER-BIONTECH COVID-19 VACCINE [Concomitant]
     Active Substance: TOZINAMERAN
     Dosage: PFIZER
     Route: 030
     Dates: start: 20210330, end: 20210330
  4. PFIZER-BIONTECH COVID-19 VACCINE [Concomitant]
     Active Substance: TOZINAMERAN
     Dosage: PFIZER
     Route: 030
     Dates: start: 20220121, end: 20220121
  5. MESALAMINE [Concomitant]
     Active Substance: MESALAMINE
     Indication: Product used for unknown indication
  6. LORATADINE [Concomitant]
     Active Substance: LORATADINE
     Indication: Product used for unknown indication
  7. FLUTICASONE [Concomitant]
     Active Substance: FLUTICASONE
     Indication: Product used for unknown indication
  8. MESALAMINE [Concomitant]
     Active Substance: MESALAMINE
     Indication: Product used for unknown indication
  9. LORATADINE [Concomitant]
     Active Substance: LORATADINE
     Indication: Product used for unknown indication
  10. FLUTICASONE [Concomitant]
     Active Substance: FLUTICASONE
     Indication: Product used for unknown indication

REACTIONS (15)
  - Heart rate abnormal [Recovering/Resolving]
  - Heart rate increased [Recovering/Resolving]
  - Feeling abnormal [Recovering/Resolving]
  - Head discomfort [Recovering/Resolving]
  - Sensation of foreign body [Unknown]
  - CSF pressure abnormal [Unknown]
  - Anxiety [Recovered/Resolved]
  - Panic attack [Recovered/Resolved]
  - Haemorrhoids [Not Recovered/Not Resolved]
  - Micturition urgency [Not Recovered/Not Resolved]
  - Proctitis [Not Recovered/Not Resolved]
  - Prostatic pain [Not Recovered/Not Resolved]
  - Insomnia [Unknown]
  - Pain in extremity [Unknown]
  - Discomfort [Unknown]

NARRATIVE: CASE EVENT DATE: 20220720
